FAERS Safety Report 16086761 (Version 3)
Quarter: 2019Q3

REPORT INFORMATION
  Report Type: Report from Study
  Country: GB (occurrence: GB)
  Receive Date: 20190318
  Receipt Date: 20190820
  Transmission Date: 20191004
  Serious: Yes (Hospitalization, Other)
  Sender: FDA-Public Use
  Company Number: PHHY2019GB060070

PATIENT
  Age: 81 Year
  Sex: Female

DRUGS (2)
  1. KISQALI [Suspect]
     Active Substance: RIBOCICLIB
     Indication: BREAST CANCER
     Dosage: 600 MG, QD
     Route: 048
     Dates: start: 20190227
  2. KISQALI [Suspect]
     Active Substance: RIBOCICLIB
     Dosage: 600 MG, QD
     Route: 048
     Dates: start: 20190301

REACTIONS (13)
  - Blood pressure increased [Unknown]
  - Joint swelling [Unknown]
  - Myocardial infarction [Unknown]
  - Musculoskeletal stiffness [Unknown]
  - Catheter site pain [Unknown]
  - Catheter site mass [Unknown]
  - Pulmonary embolism [Recovered/Resolved]
  - Atrial fibrillation [Not Recovered/Not Resolved]
  - Dyskinesia [Unknown]
  - Left ventricular hypertrophy [Unknown]
  - Dyspnoea [Unknown]
  - Lethargy [Unknown]
  - Catheter site bruise [Unknown]

NARRATIVE: CASE EVENT DATE: 20190328
